FAERS Safety Report 7954016-9 (Version None)
Quarter: 2011Q4

REPORT INFORMATION
  Report Type: 
  Country: None (occurrence: None)
  Receive Date: 20111129
  Receipt Date: 20111116
  Transmission Date: 20120403
  Serious: Yes (Hospitalization, Other)
  Sender: FDA-Public Use
  Company Number: INT_00044_2011

PATIENT
  Age: 15 Year
  Sex: Male

DRUGS (3)
  1. GENTAMICIN [Suspect]
     Indication: UPPER RESPIRATORY TRACT INFECTION
     Dosage: (500 MG QD INTRAVENOUS (NOT OTHERWISE SPECIFIED))
     Route: 042
  2. SULFAMETHOXAZOLE AND TRIMBTHOPRIM [Concomitant]
  3. CEFEPIME [Suspect]
     Indication: UPPER RESPIRATORY TRACT INFECTION
     Dosage: (2 G LX/8 HOURS INTRAVENOUS (NOT OTHERWISE SPECIFIED))
     Route: 042

REACTIONS (13)
  - RENAL FAILURE ACUTE [None]
  - DEHYDRATION [None]
  - METABOLIC ENCEPHALOPATHY [None]
  - WHITE BLOOD CELL COUNT INCREASED [None]
  - ASPARTATE AMINOTRANSFERASE INCREASED [None]
  - DRUG CLEARANCE DECREASED [None]
  - BLOOD ALKALINE PHOSPHATASE INCREASED [None]
  - NEUTROPHIL PERCENTAGE INCREASED [None]
  - AMMONIA INCREASED [None]
  - HAEMODIALYSIS [None]
  - NEUROTOXICITY [None]
  - ALANINE AMINOTRANSFERASE INCREASED [None]
  - AMNESIA [None]
